FAERS Safety Report 9320817 (Version 1)
Quarter: 2013Q2

REPORT INFORMATION
  Report Type: Spontaneous
  Country: SG (occurrence: None)
  Receive Date: 20130528
  Receipt Date: 20130528
  Transmission Date: 20140414
  Serious: Yes (Hospitalization)
  Sender: FDA-Public Use
  Company Number: 2011AP003102

PATIENT
  Sex: 0

DRUGS (1)
  1. FERRIPROX [Suspect]
     Indication: THALASSAEMIA BETA
     Dosage: 23 JAN 2003 - PRESENT
     Dates: start: 20030123

REACTIONS (1)
  - Arthritis [None]
